FAERS Safety Report 24299736 (Version 1)
Quarter: 2024Q3

REPORT INFORMATION
  Report Type: Spontaneous
  Country: CA (occurrence: CA)
  Receive Date: 20240909
  Receipt Date: 20240909
  Transmission Date: 20241017
  Serious: No
  Sender: JAZZ
  Company Number: CA-JAZZ PHARMACEUTICALS-2023-CA-023667

PATIENT

DRUGS (2)
  1. RYLAZE [Suspect]
     Active Substance: ASPARAGINASE ERWINIA CHRYSANTHEMI (RECOMBINANT)-RYWN
     Indication: Acute lymphocytic leukaemia
     Dosage: 25MG/M2, ON MONDAYS AND WEDNESDAY
  2. RYLAZE [Suspect]
     Active Substance: ASPARAGINASE ERWINIA CHRYSANTHEMI (RECOMBINANT)-RYWN
     Dosage: 37.5MG/M2, ON FRIDAY

REACTIONS (1)
  - Minimal residual disease [Unknown]
